FAERS Safety Report 7781003-6 (Version None)
Quarter: 2011Q3

REPORT INFORMATION
  Report Type: 
  Country: None (occurrence: None)
  Receive Date: 20110927
  Receipt Date: 20110914
  Transmission Date: 20111222
  Serious: Yes (Other)
  Sender: FDA-Public Use
  Company Number: PHEH2011US04194

PATIENT
  Sex: Female

DRUGS (7)
  1. ULTRAM [Concomitant]
     Indication: PAIN
     Dosage: 50 MG, UNK
  2. PREMPRO [Concomitant]
     Dosage: UNK UKN, UNK
  3. DIOVAN [Suspect]
     Indication: HYPERTENSION
     Dosage: 320 MG, QD
     Route: 048
  4. AZOR [Suspect]
     Indication: BLOOD PRESSURE
     Dosage: UNK UKN, UNK
     Route: 048
  5. VERAPAMIL - SLOW RELEASE [Suspect]
     Dosage: 120 MG, QD
     Route: 048
  6. COREG [Suspect]
     Dosage: 20 MG, QD
  7. ATIVAN [Concomitant]
     Dosage: 2 MG, UNK

REACTIONS (3)
  - HYPERTENSION [None]
  - HEADACHE [None]
  - HEART RATE INCREASED [None]
